FAERS Safety Report 6444293-8 (Version None)
Quarter: 2009Q4

REPORT INFORMATION
  Report Type: 
  Country: None (occurrence: None)
  Receive Date: 20091116
  Receipt Date: 20091116
  Transmission Date: 20100525
  Serious: No
  Sender: FDA-Public Use
  Company Number: None

PATIENT
  Age: 84 Year
  Sex: Female
  Weight: 44.9061 kg

DRUGS (1)
  1. VERSED [Suspect]
     Dosage: UNKNOWN (SHOT)
     Dates: start: 20091007

REACTIONS (2)
  - AGGRESSION [None]
  - AMNESIA [None]
